FAERS Safety Report 15284949 (Version 1)
Quarter: 2018Q3

REPORT INFORMATION
  Report Type: Spontaneous
  Country: US (occurrence: US)
  Receive Date: 20180801
  Receipt Date: 20180801
  Transmission Date: 20181010
  Serious: Yes (Disabling, Other)
  Sender: FDA-Public Use
  Company Number: None

PATIENT
  Age: 60 Year
  Sex: Female
  Weight: 78.47 kg

DRUGS (1)
  1. FLUTICASONE PROPIONATE. [Suspect]
     Active Substance: FLUTICASONE PROPIONATE
     Route: 055

REACTIONS (8)
  - Nasal oedema [None]
  - Nasal congestion [None]
  - Head discomfort [None]
  - Balance disorder [None]
  - Nasal disorder [None]
  - Nasal dryness [None]
  - Erythema [None]
  - Dizziness [None]
